FAERS Safety Report 8427123-4 (Version None)
Quarter: 2012Q2

REPORT INFORMATION
  Report Type: 
  Country: None (occurrence: None)
  Receive Date: 20120611
  Receipt Date: 20120606
  Transmission Date: 20120825
  Serious: Yes (Death)
  Sender: FDA-Public Use
  Company Number: US-CELGENEUS-163-21880-12052565

PATIENT
  Sex: Male

DRUGS (13)
  1. HYDRALAZINE HCL [Concomitant]
     Dosage: 100 MILLIGRAM
     Route: 048
  2. MEGESTROL ACETATE [Concomitant]
     Dosage: 800MG/20
     Route: 048
  3. OXYCONTIN [Concomitant]
     Dosage: 10 MILLIGRAM
     Route: 048
  4. PROTONIX [Concomitant]
     Dosage: 40 MILLIGRAM
     Route: 048
  5. AMBIEN [Concomitant]
     Dosage: 5 MILLIGRAM
     Route: 048
  6. PROBIOTIC [Concomitant]
     Route: 048
  7. PREDNISONE TAB [Concomitant]
     Dosage: 5MG/5ML
     Route: 065
  8. LOPRESSOR [Concomitant]
     Dosage: 5MG/5ML
     Route: 065
  9. ACETAMINOPHEN [Concomitant]
     Dosage: 500 MILLIGRAM
     Route: 048
  10. REVLIMID [Suspect]
     Dosage: 25 MILLIGRAM
     Route: 048
     Dates: start: 20120501, end: 20120501
  11. ATIVAN [Concomitant]
     Dosage: .5 MILLIGRAM
     Route: 048
  12. DILAUDID [Concomitant]
     Dosage: 1 MILLIGRAM/MILLILITERS
     Route: 065
  13. VASOLEX [Concomitant]
     Route: 061

REACTIONS (1)
  - HODGKIN'S DISEASE [None]
